FAERS Safety Report 20815759 (Version 1)
Quarter: 2022Q2

REPORT INFORMATION
  Report Type: Spontaneous
  Country: US (occurrence: US)
  Receive Date: 20220511
  Receipt Date: 20220511
  Transmission Date: 20220721
  Serious: No
  Sender: FDA-Public Use
  Company Number: US-PFIZER INC-202200676576

PATIENT
  Age: 46 Year
  Sex: Female
  Weight: 50.8 kg

DRUGS (2)
  1. PAXLOVID [Suspect]
     Active Substance: NIRMATRELVIR\RITONAVIR
     Indication: COVID-19
     Dosage: 100 MG, 1X/DAY (3 TABLETS BY MOUTH EVERY 12 HOURS, 1 100MG RITONAVIR/ 2 300MG NIRMATRELVIR)
     Route: 048
     Dates: start: 20220425, end: 20220429
  2. PAXLOVID [Suspect]
     Active Substance: NIRMATRELVIR\RITONAVIR
     Dosage: 300 MG, 2X/DAY (3 TABLETS BY MOUTH EVERY 12 HOURS, 1 100MG RITONAVIR/ 2 300MG NIRMATRELVIR)
     Route: 048

REACTIONS (2)
  - Disease recurrence [Unknown]
  - COVID-19 [Unknown]
